FAERS Safety Report 7034622-9 (Version None)
Quarter: 2010Q4

REPORT INFORMATION
  Report Type: 
  Country: None (occurrence: None)
  Receive Date: 20101008
  Receipt Date: 20100929
  Transmission Date: 20110411
  Serious: Yes (Hospitalization)
  Sender: FDA-Public Use
  Company Number: PT-ASTRAZENECA-2010SE45952

PATIENT
  Age: 97 Year
  Sex: Female
  Weight: 55 kg

DRUGS (7)
  1. NEXIUM [Suspect]
     Indication: PROPHYLAXIS
     Route: 042
     Dates: start: 20100809, end: 20100831
  2. BUDESONIDE [Concomitant]
     Dates: start: 20100809
  3. PREDNISOLONE [Concomitant]
     Dates: start: 20100828
  4. IPRATROPIUM BROMIDE [Concomitant]
     Route: 055
     Dates: start: 20100809
  5. SALBUTAMOL SULFATE [Concomitant]
     Route: 055
     Dates: start: 20100809
  6. VANCOMYCIN [Concomitant]
     Dates: start: 20100811, end: 20100823
  7. AMOXICILLIN AND CLAVULANATE POTASSIUM [Concomitant]
     Dates: start: 20100809, end: 20100823

REACTIONS (1)
  - TOXIC SKIN ERUPTION [None]
